FAERS Safety Report 9276502 (Version 2)
Quarter: 2013Q4

REPORT INFORMATION
  Report Type: Spontaneous
  Country: US (occurrence: US)
  Receive Date: 20130507
  Receipt Date: 20131114
  Transmission Date: 20140711
  Serious: Yes (Hospitalization)
  Sender: FDA-Public Use
  Company Number: US-BAYER-2013-055438

PATIENT
  Age: 35 Year
  Sex: Female
  Weight: 82.54 kg

DRUGS (4)
  1. BEYAZ [Suspect]
     Dosage: UNK
     Dates: start: 201105, end: 201106
  2. LEVOTHYROXIN [Concomitant]
     Dosage: 75 ?G, UNK
  3. PHENTERMINE [Concomitant]
     Dosage: 37.5 MG, UNK
  4. METRONIDAZOLE [Concomitant]
     Dosage: 500 ?G, UNK

REACTIONS (11)
  - Pulmonary embolism [None]
  - Deep vein thrombosis [None]
  - Basal ganglia infarction [None]
  - Cerebrovascular accident [None]
  - Injury [None]
  - Pain in extremity [None]
  - Muscle swelling [None]
  - Emotional distress [None]
  - Depression [None]
  - Fear of death [None]
  - Nervousness [None]
